FAERS Safety Report 9171616 (Version 1)
Quarter: 2013Q1

REPORT INFORMATION
  Report Type: Spontaneous
  Country: US (occurrence: None)
  Receive Date: 20130318
  Receipt Date: 20130318
  Transmission Date: 20140127
  Serious: Yes (Hospitalization)
  Sender: FDA-Public Use
  Company Number: None

PATIENT
  Sex: Female

DRUGS (1)
  1. RIBASPHERE [Suspect]
     Dosage: 400MG BID ORAL
     Route: 048
     Dates: start: 20130101

REACTIONS (2)
  - Hypotension [None]
  - Transfusion [None]
